FAERS Safety Report 17353211 (Version 1)
Quarter: 2020Q1

REPORT INFORMATION
  Report Type: Spontaneous
  Country: US (occurrence: US)
  Receive Date: 20200131
  Receipt Date: 20200131
  Transmission Date: 20200409
  Serious: No
  Sender: FDA-Public Use
  Company Number: US-TEVA-2020-US-1178368

PATIENT
  Sex: Female

DRUGS (4)
  1. TRELEGY ELLIPTA [Concomitant]
     Active Substance: FLUTICASONE FUROATE\UMECLIDINIUM BROMIDE\VILANTEROL TRIFENATATE
  2. PROAIR HFA [Suspect]
     Active Substance: ALBUTEROL SULFATE
     Indication: INFECTION
     Route: 065
  3. QVAR REDIHALER [Suspect]
     Active Substance: BECLOMETHASONE DIPROPIONATE
     Indication: INFECTION
     Route: 065
  4. IPRATROPIUM-ALBUTEROL [Suspect]
     Active Substance: ALBUTEROL\IPRATROPIUM
     Route: 065

REACTIONS (6)
  - Off label use [Unknown]
  - Dyspnoea [Unknown]
  - Malaise [Unknown]
  - Bronchitis [Unknown]
  - Condition aggravated [Recovered/Resolved]
  - Inappropriate schedule of product administration [Unknown]
